FAERS Safety Report 10342416 (Version 1)
Quarter: 2014Q3

REPORT INFORMATION
  Report Type: Spontaneous
  Country: US (occurrence: US)
  Receive Date: 20140725
  Receipt Date: 20140725
  Transmission Date: 20150326
  Serious: Yes (Other)
  Sender: FDA-Public Use
  Company Number: US-FRI-1000069124

PATIENT
  Age: 45 Year
  Sex: Female

DRUGS (3)
  1. METFORMIN [Concomitant]
     Active Substance: METFORMIN HYDROCHLORIDE
     Indication: POLYCYSTIC OVARIES
     Dosage: 500MG
  2. PRENATAL VITAMIN [Concomitant]
     Active Substance: VITAMINS
     Indication: PRENATAL CARE
     Dosage: DAILY
  3. ARMOUR THYROID [Suspect]
     Active Substance: THYROID, PORCINE\THYROID, UNSPECIFIED
     Indication: AUTOIMMUNE THYROIDITIS
     Dosage: 120MG
     Route: 048
     Dates: start: 2013, end: 20140317

REACTIONS (3)
  - Pregnancy [Recovered/Resolved]
  - Abortion spontaneous [Recovered/Resolved]
  - Exposure during pregnancy [Recovered/Resolved]

NARRATIVE: CASE EVENT DATE: 201402
